FAERS Safety Report 12076607 (Version 1)
Quarter: 2016Q1

REPORT INFORMATION
  Report Type: Report from Study
  Country: CH (occurrence: CH)
  Receive Date: 20160215
  Receipt Date: 20160215
  Transmission Date: 20160526
  Serious: Yes (Hospitalization)
  Sender: FDA-Public Use
  Company Number: CH-009507513-1303CHE010624

PATIENT
  Age: 76 Year
  Sex: Male
  Weight: 85 kg

DRUGS (19)
  1. ALDACTONE [Concomitant]
     Active Substance: SPIRONOLACTONE
     Indication: HYPERTENSION
     Dosage: 50 MG, QD
     Route: 048
     Dates: start: 200301
  2. PARIET [Concomitant]
     Active Substance: RABEPRAZOLE SODIUM
     Indication: PROPHYLAXIS AGAINST GASTROINTESTINAL ULCER
     Dosage: 20 MG, QD
     Route: 048
     Dates: start: 200301
  3. TEMESTA [Concomitant]
     Active Substance: LORAZEPAM
     Indication: DEPRESSION
     Dosage: 1 MG, BID
     Route: 048
     Dates: start: 201205
  4. OXYNORM [Concomitant]
     Active Substance: OXYCODONE HYDROCHLORIDE
     Indication: NECK PAIN
     Dosage: STRENGTH 10, PRN
     Route: 048
     Dates: start: 201212
  5. PEMBROLIZUMAB. [Suspect]
     Active Substance: PEMBROLIZUMAB
     Indication: MALIGNANT MELANOMA
     Dosage: 2 MG/KG, Q3W
     Route: 042
     Dates: start: 20130211, end: 20130211
  6. MAGNESIOCARD [Concomitant]
     Active Substance: MAGNESIUM ASPARTATE HYDROCHLORIDE
     Indication: PROPHYLAXIS
     Dosage: 1APPLICATION, QD
     Route: 048
     Dates: start: 200301
  7. FRAGMIN [Concomitant]
     Active Substance: DALTEPARIN SODIUM
     Indication: THERAPY CESSATION
     Dosage: 7500 IU, QD
     Route: 058
     Dates: start: 20130202, end: 20130208
  8. MARCOUMAR [Concomitant]
     Active Substance: PHENPROCOUMON
     Dosage: 3 MG, QD
     Route: 048
     Dates: start: 20130205
  9. TRIATEC (RAMIPRIL) [Concomitant]
     Active Substance: RAMIPRIL
     Indication: HYPERTENSION
     Dosage: 1.25 MG, QD
     Route: 048
     Dates: start: 200301
  10. MARCOUMAR [Concomitant]
     Active Substance: PHENPROCOUMON
     Indication: CARDIAC PACEMAKER INSERTION
     Dosage: 3 MG, QD
     Route: 048
     Dates: start: 200301, end: 20130131
  11. PARAGAR [Concomitant]
     Indication: PROPHYLAXIS
     Dosage: 10 MG DAILY, PRN
     Route: 048
     Dates: start: 201212
  12. TEMESTA [Concomitant]
     Active Substance: LORAZEPAM
     Indication: DEPRESSION
     Dosage: 2.5 MG, QD
     Route: 048
     Dates: start: 201205
  13. TARGIN [Concomitant]
     Active Substance: NALOXONE HYDROCHLORIDE\OXYCODONE HYDROCHLORIDE
     Indication: NECK PAIN
     Dosage: 1.5 TABLET, BID
     Route: 048
     Dates: start: 201212, end: 20130303
  14. TARGIN [Concomitant]
     Active Substance: NALOXONE HYDROCHLORIDE\OXYCODONE HYDROCHLORIDE
     Dosage: 15 MG, BID
     Route: 048
     Dates: start: 20130304, end: 20130304
  15. ASPIRIN CARDIO [Concomitant]
     Active Substance: ASPIRIN
     Indication: CARDIAC PACEMAKER INSERTION
     Dosage: 100 MG, QD
     Route: 048
     Dates: start: 19970101
  16. CONCOR [Concomitant]
     Active Substance: BISOPROLOL FUMARATE
     Indication: HYPERTENSION
     Dosage: 2.5 MG, QD
     Route: 048
     Dates: start: 200301
  17. REMERON [Concomitant]
     Active Substance: MIRTAZAPINE
     Indication: DEPRESSION
     Dosage: 45 MG, QD
     Route: 048
     Dates: start: 201205
  18. NOVALGIN (DIPYRONE) [Concomitant]
     Active Substance: DIPYRONE
     Indication: NECK PAIN
     Dosage: PRN, DAILY DOSE 4000 MG
     Route: 048
     Dates: start: 201212
  19. TOREM [Concomitant]
     Active Substance: TORSEMIDE
     Indication: ASCITES
     Dosage: 20 MG, QD
     Route: 048
     Dates: start: 201208

REACTIONS (1)
  - Stevens-Johnson syndrome [Recovered/Resolved]

NARRATIVE: CASE EVENT DATE: 20130214
